FAERS Safety Report 14759463 (Version 1)
Quarter: 2018Q2

REPORT INFORMATION
  Report Type: Spontaneous
  Country: JP (occurrence: JP)
  Receive Date: 20180413
  Receipt Date: 20180413
  Transmission Date: 20180711
  Serious: Yes (Other)
  Sender: FDA-Public Use
  Company Number: JP-BAUSCH-BL-2017-001718

PATIENT
  Age: 78 Year
  Sex: Male

DRUGS (2)
  1. VERTEPORFIN (NVO) (VERTEPORFIN) [Suspect]
     Active Substance: VERTEPORFIN
     Indication: MACULAR DEGENERATION
     Route: 042
  2. LUCENTIS [Suspect]
     Active Substance: RANIBIZUMAB
     Indication: MACULAR DEGENERATION
     Dosage: INTRAVITREAL IN
     Route: 050

REACTIONS (1)
  - Macular degeneration [Unknown]
